FAERS Safety Report 15404341 (Version 1)
Quarter: 2018Q3

REPORT INFORMATION
  Report Type: Spontaneous
  Country: US (occurrence: US)
  Receive Date: 20180919
  Receipt Date: 20180919
  Transmission Date: 20181010
  Serious: No
  Sender: FDA-Public Use
  Company Number: PHHY2018US099534

PATIENT
  Sex: Female

DRUGS (1)
  1. GENTEAL MODERATE TO SEVERE GEL DROPS [Suspect]
     Active Substance: CARBOXYMETHYLCELLULOSE SODIUM\HYPROMELLOSES
     Indication: PRODUCT USED FOR UNKNOWN INDICATION
     Dosage: UNK
     Route: 047
     Dates: start: 20180908, end: 20180911

REACTIONS (3)
  - Headache [Recovering/Resolving]
  - Eye irritation [Recovering/Resolving]
  - Eye pain [Recovering/Resolving]

NARRATIVE: CASE EVENT DATE: 20180908
